FAERS Safety Report 6499877-8 (Version None)
Quarter: 2009Q4

REPORT INFORMATION
  Report Type: 
  Country: None (occurrence: None)
  Receive Date: 20091214
  Receipt Date: 20091214
  Transmission Date: 20100525
  Serious: Yes (Hospitalization)
  Sender: FDA-Public Use
  Company Number: None

PATIENT
  Age: 71 Year
  Sex: Male
  Weight: 94.8 kg

DRUGS (2)
  1. CLOPIDOGREL [Suspect]
     Indication: CORONARY ARTERIAL STENT INSERTION
     Dosage: 75 MG EVERYDAY PO
     Route: 048
     Dates: start: 20080425, end: 20091023
  2. ASPIRIN [Suspect]
     Indication: CORONARY ARTERIAL STENT INSERTION
     Dosage: 325 MG EVERYDAY PO
     Route: 048

REACTIONS (4)
  - ANAEMIA [None]
  - ANGINA PECTORIS [None]
  - GASTRIC HAEMORRHAGE [None]
  - SYNCOPE [None]
